FAERS Safety Report 14485013 (Version 3)
Quarter: 2018Q4

REPORT INFORMATION
  Report Type: Spontaneous
  Country: US (occurrence: US)
  Receive Date: 20180205
  Receipt Date: 20181218
  Transmission Date: 20190204
  Serious: No
  Sender: FDA-Public Use
  Company Number: US-PFIZER INC-2018043882

PATIENT
  Age: 69 Year
  Sex: Female

DRUGS (6)
  1. PERCOCET [Concomitant]
     Active Substance: ACETAMINOPHEN\OXYCODONE HYDROCHLORIDE
     Indication: PAIN
     Dosage: 1 DF, AS NEEDED (5/3.25MG IN THE MORNING AND NIGHT AS NEEDED/EVERY 4-6 HRS AS NEEDED)
     Dates: start: 2018
  2. FENTANYL. [Concomitant]
     Active Substance: FENTANYL
     Indication: PAIN
     Dosage: UNK (50MCG/H CHANGES PATCH EVERY 72 HOURS )
     Dates: start: 2017
  3. IBRANCE [Suspect]
     Active Substance: PALBOCICLIB
     Indication: BREAST CANCER FEMALE
     Dosage: 100 MG, CYCLIC(DAILY FOR 21 DAYS, OFF FOR 7 DAYS)
     Route: 048
     Dates: start: 2018
  4. MORPHINE [Concomitant]
     Active Substance: MORPHINE
     Indication: PAIN
     Dosage: 15 MG, AS NEEDED (EVERY 4 HOURS )
     Dates: start: 2018
  5. LYRICA [Concomitant]
     Active Substance: PREGABALIN
     Indication: NEUROPATHY PERIPHERAL
     Dosage: 25 MG, 2X/DAY AT NIGHT
     Dates: start: 2018
  6. ZOFRAN [Concomitant]
     Active Substance: ONDANSETRON HYDROCHLORIDE
     Indication: NAUSEA
     Dosage: 8 MG, AS NEEDED
     Dates: start: 2008

REACTIONS (3)
  - Vomiting [Unknown]
  - Malaise [Unknown]
  - Pain [Unknown]

NARRATIVE: CASE EVENT DATE: 2018
